FAERS Safety Report 9470073 (Version 2)
Quarter: 2013Q3

REPORT INFORMATION
  Report Type: Spontaneous
  Country: JP (occurrence: JP)
  Receive Date: 20130822
  Receipt Date: 20130822
  Transmission Date: 20140515
  Serious: Yes (Death)
  Sender: FDA-Public Use
  Company Number: JP-COVIDIEN/TYCO HEALTHCARE/MALLINCKRODT-T201302374

PATIENT
  Age: 54 Year
  Sex: Female

DRUGS (8)
  1. METHADONE [Suspect]
     Indication: CANCER PAIN
     Dosage: 15 MG (10 MG AND 5 MG)
     Route: 048
     Dates: start: 20130515, end: 20130616
  2. METHADONE [Suspect]
     Dosage: 5 MG, TID
     Route: 048
     Dates: start: 20130412, end: 20130418
  3. METHADONE [Suspect]
     Dosage: 10 MG, BID
     Route: 048
     Dates: start: 20130419, end: 20130421
  4. METHADONE [Suspect]
     Dosage: 5 MG, BID
     Route: 048
     Dates: start: 20130422, end: 20130514
  5. OXINORM                            /00045603/ [Concomitant]
     Dosage: 10 MG, QD
     Route: 048
     Dates: start: 20130412, end: 20130412
  6. OXINORM                            /00045603/ [Concomitant]
     Dosage: 10 MG, BID
     Route: 048
     Dates: start: 20130413, end: 20130414
  7. VOLTAREN                           /00372301/ [Concomitant]
     Dosage: 50 MG, UNK
     Route: 054
     Dates: end: 20130616
  8. NEGMIN [Concomitant]
     Dosage: 10 G, UNK
     Route: 062
     Dates: end: 20130616

REACTIONS (2)
  - Osteosarcoma [Fatal]
  - Somnolence [Recovered/Resolved]
